FAERS Safety Report 18685556 (Version 1)
Quarter: 2020Q4

REPORT INFORMATION
  Report Type: Spontaneous
  Country: US (occurrence: US)
  Receive Date: 20201230
  Receipt Date: 20201230
  Transmission Date: 20210114
  Serious: Yes (Other)
  Sender: FDA-Public Use
  Company Number: US-PURDUE-USA-2020-0160207

PATIENT

DRUGS (1)
  1. OXYCONTIN [Suspect]
     Active Substance: OXYCODONE HYDROCHLORIDE
     Indication: PAIN
     Dosage: UNK
     Route: 048

REACTIONS (8)
  - Pain [Unknown]
  - Road traffic accident [Unknown]
  - Sleep deficit [Unknown]
  - Somnolence [Unknown]
  - Drug dependence [Unknown]
  - Depression [Unknown]
  - Emotional distress [Unknown]
  - Drug withdrawal syndrome [Unknown]
